FAERS Safety Report 21485201 (Version 1)
Quarter: 2022Q4

REPORT INFORMATION
  Report Type: Spontaneous
  Country: US (occurrence: US)
  Receive Date: 20221020
  Receipt Date: 20221020
  Transmission Date: 20230113
  Serious: No
  Sender: FDA-Public Use
  Company Number: US-PFIZER INC-202201240626

PATIENT
  Age: 48 Year
  Sex: Female
  Weight: 58.06 kg

DRUGS (3)
  1. PAXLOVID [Suspect]
     Active Substance: NIRMATRELVIR\RITONAVIR
     Indication: COVID-19 treatment
     Dosage: 3 DF, 2X/DAY (3 TABLETS TWICE A DAY)
     Route: 048
     Dates: start: 20221015
  2. PREDNISONE [Concomitant]
     Active Substance: PREDNISONE
     Dosage: UNK
  3. LOSARTAN [Concomitant]
     Active Substance: LOSARTAN

REACTIONS (6)
  - Muscular weakness [Unknown]
  - Dysgeusia [Not Recovered/Not Resolved]
  - Asthenia [Unknown]
  - Balance disorder [Not Recovered/Not Resolved]
  - Illness [Unknown]
  - Tremor [Unknown]

NARRATIVE: CASE EVENT DATE: 20221001
